FAERS Safety Report 16843639 (Version 2)
Quarter: 2019Q4

REPORT INFORMATION
  Report Type: Spontaneous
  Country: US (occurrence: US)
  Receive Date: 20190924
  Receipt Date: 20191026
  Transmission Date: 20200122
  Serious: Yes (Death)
  Sender: FDA-Public Use
  Company Number: US-UNITED THERAPEUTICS-UNT-2019-015908

PATIENT
  Age: 62 Year
  Sex: Female
  Weight: 68.48 kg

DRUGS (2)
  1. TADALAFIL. [Concomitant]
     Active Substance: TADALAFIL
     Indication: PRODUCT USED FOR UNKNOWN INDICATION
     Dosage: UNK
     Route: 065
  2. TYVASO [Suspect]
     Active Substance: TREPROSTINIL
     Indication: PULMONARY ARTERIAL HYPERTENSION
     Dosage: 60-120 ?G, QID
     Dates: start: 20190109

REACTIONS (2)
  - Road traffic accident [Fatal]
  - Off label use [Unknown]

NARRATIVE: CASE EVENT DATE: 20190109
